FAERS Safety Report 10465373 (Version 1)
Quarter: 2014Q3

REPORT INFORMATION
  Report Type: Spontaneous
  Country: BR (occurrence: BR)
  Receive Date: 20140919
  Receipt Date: 20140919
  Transmission Date: 20150326
  Serious: Yes (Hospitalization)
  Sender: FDA-Public Use
  Company Number: BR-PFIZER INC-2014255965

PATIENT
  Age: 69 Year
  Sex: Male
  Weight: 90 kg

DRUGS (9)
  1. ALDACTONE [Suspect]
     Active Substance: SPIRONOLACTONE
     Indication: HEART TRANSPLANT
     Dosage: HALF TABLET OF 25 MG (12.5 MG), 1X/DAY
     Route: 048
     Dates: start: 201401
  2. MONOCORDIL [Concomitant]
     Active Substance: ISOSORBIDE MONONITRATE
     Indication: CARDIAC DISORDER
     Dosage: UNSPECIFIED DOSE, ONCE DAILY
  3. BENERVA [Concomitant]
     Active Substance: THIAMINE
     Indication: VITAMIN SUPPLEMENTATION
     Dosage: UNSPECIFIED DOSE, ONCE DAILY
     Dates: start: 201404
  4. CLORANA [Concomitant]
     Active Substance: HYDROCHLOROTHIAZIDE
     Indication: DIURETIC THERAPY
     Dosage: 1 UNIT (25 MG) DAILY
     Dates: start: 2013
  5. CONCOR [Concomitant]
     Active Substance: BISOPROLOL FUMARATE
     Indication: CARDIAC DISORDER
     Dosage: 5 MG, DAILY
  6. OMEGA 100 [Concomitant]
     Dosage: 1 DF, DAILY
     Dates: start: 201311
  7. VITAMIN B1 [Concomitant]
     Active Substance: THIAMINE HYDROCHLORIDE
     Indication: VITAMIN SUPPLEMENTATION
     Dosage: UNSPECIFIED DOSE, ONCE DAILY
  8. ZYLORIC [Concomitant]
     Active Substance: ALLOPURINOL
     Indication: BLOOD URIC ACID
     Dosage: UNSPECIFIED DOSE, TWICE DAILY
     Dates: start: 201407
  9. SOMALGIN [Concomitant]
     Active Substance: ASPIRIN\DIHYDROXYALUMINUM AMINOACETATE ANHYDROUS\MAGNESIUM CARBONATE
     Dosage: UNSPECIFIED DOSE, TWICE DAILY
     Dates: start: 2012

REACTIONS (5)
  - Renal impairment [Not Recovered/Not Resolved]
  - Swelling [Unknown]
  - Drug ineffective [Not Recovered/Not Resolved]
  - Pain [Unknown]
  - Dysuria [Unknown]

NARRATIVE: CASE EVENT DATE: 2014
